FAERS Safety Report 13833666 (Version 1)
Quarter: 2017Q3

REPORT INFORMATION
  Report Type: Spontaneous
  Country: FR (occurrence: FR)
  Receive Date: 20170804
  Receipt Date: 20170804
  Transmission Date: 20171127
  Serious: Yes (Other)
  Sender: FDA-Public Use
  Company Number: FR-MERCK KGAA-2024142

PATIENT
  Sex: Female

DRUGS (1)
  1. NOVOTHYROX [Suspect]
     Active Substance: LEVOTHYROXINE SODIUM
     Indication: POST PROCEDURAL HYPOTHYROIDISM

REACTIONS (7)
  - Palpitations [None]
  - Head discomfort [None]
  - Blood thyroid stimulating hormone decreased [None]
  - Hot flush [None]
  - Hyperthyroidism [None]
  - Anxiety [None]
  - Dizziness [None]

NARRATIVE: CASE EVENT DATE: 2017
